FAERS Safety Report 9564543 (Version 2)
Quarter: 2013Q4

REPORT INFORMATION
  Report Type: Spontaneous
  Country: US (occurrence: US)
  Receive Date: 20130930
  Receipt Date: 20131028
  Transmission Date: 20140711
  Serious: No
  Sender: FDA-Public Use
  Company Number: US-PFIZER INC-2013277726

PATIENT
  Age: 77 Year
  Sex: Female

DRUGS (1)
  1. CELEBREX [Suspect]
     Indication: ARTHRITIS
     Dosage: UNK

REACTIONS (3)
  - Hearing impaired [Recovering/Resolving]
  - Dysacusis [Recovering/Resolving]
  - Ear discomfort [Recovering/Resolving]
